FAERS Safety Report 18776410 (Version 1)
Quarter: 2021Q1

REPORT INFORMATION
  Report Type: Spontaneous
  Country: CH (occurrence: CH)
  Receive Date: 20210122
  Receipt Date: 20210122
  Transmission Date: 20210419
  Serious: Yes (Hospitalization, Other)
  Sender: FDA-Public Use
  Company Number: CH-ASTRAZENECA-2021A011018

PATIENT
  Age: 78 Year
  Sex: Female

DRUGS (7)
  1. IMFINZI [Suspect]
     Active Substance: DURVALUMAB
     Route: 042
     Dates: start: 20191119, end: 20191119
  2. ASPIRIN CARDIO [Concomitant]
     Active Substance: ASPIRIN
  3. CEFUROXIME SODIUM. [Concomitant]
     Active Substance: CEFUROXIME SODIUM
     Dates: end: 20191212
  4. LITHIOFOR [Suspect]
     Active Substance: LITHIUM SULFATE
     Route: 065
  5. DALMADORM [Suspect]
     Active Substance: FLURAZEPAM HYDROCHLORIDE
     Route: 048
  6. CARBOPLATIN. [Suspect]
     Active Substance: CARBOPLATIN
     Route: 065
     Dates: end: 201909
  7. PACLITAXEL. [Suspect]
     Active Substance: PACLITAXEL
     Route: 065
     Dates: end: 201909

REACTIONS (7)
  - Condition aggravated [Recovering/Resolving]
  - Gait disturbance [Recovering/Resolving]
  - Antipsychotic drug level above therapeutic [Not Recovered/Not Resolved]
  - Hypercalcaemia [Recovered/Resolved]
  - Balance disorder [Recovering/Resolving]
  - Chronic kidney disease [Recovering/Resolving]
  - Dysarthria [Recovering/Resolving]

NARRATIVE: CASE EVENT DATE: 201812
